FAERS Safety Report 7361932-8 (Version None)
Quarter: 2011Q1

REPORT INFORMATION
  Report Type: 
  Country: None (occurrence: None)
  Receive Date: 20110315
  Receipt Date: 20110315
  Transmission Date: 20110831
  Serious: Yes (Death, Life-Threatening, Hospitalization)
  Sender: FDA-Public Use
  Company Number: None

PATIENT
  Age: 80 Year
  Sex: Male
  Weight: 96 kg

DRUGS (2)
  1. MOXIFLOXACIN HCL [Suspect]
     Indication: PNEUMONIA
     Dosage: 400 MG DAILY PO
     Route: 048
     Dates: start: 20110131, end: 20110204
  2. CIPROFLOXACIN [Suspect]
     Indication: PNEUMONIA
     Dosage: 400 MG Q12H IV
     Route: 042
     Dates: start: 20110209, end: 20110214

REACTIONS (12)
  - HEPATOSPLENOMEGALY [None]
  - RESPIRATORY FAILURE [None]
  - FATIGUE [None]
  - MYALGIA [None]
  - SPUTUM DISCOLOURED [None]
  - PAIN [None]
  - PYREXIA [None]
  - DECREASED APPETITE [None]
  - PRODUCTIVE COUGH [None]
  - HEPATIC FAILURE [None]
  - HEADACHE [None]
  - SEPSIS [None]
